FAERS Safety Report 4502211-3 (Version None)
Quarter: 2004Q4

REPORT INFORMATION
  Report Type: 
  Country: None (occurrence: None)
  Receive Date: 20041109
  Receipt Date: 20041025
  Transmission Date: 20050328
  Serious: Yes (Other)
  Sender: FDA-Public Use
  Company Number: GBS041015823

PATIENT
  Age: 14 Year
  Sex: Female

DRUGS (1)
  1. ATOMOXETINE HYDROCHLORIDE [Suspect]
     Indication: ATTENTION DEFICIT/HYPERACTIVITY DISORDER
     Dates: start: 20041001

REACTIONS (3)
  - ABORTION INDUCED [None]
  - CONVULSION [None]
  - DRUG EXPOSURE DURING PREGNANCY [None]
